FAERS Safety Report 20611811 (Version 1)
Quarter: 2022Q1

REPORT INFORMATION
  Report Type: Spontaneous
  Country: US (occurrence: US)
  Receive Date: 20220318
  Receipt Date: 20220318
  Transmission Date: 20220423
  Serious: Yes (Other)
  Sender: FDA-Public Use
  Company Number: US-MYLANLABS-2022M1020526

PATIENT
  Age: 51 Year
  Sex: Male

DRUGS (1)
  1. ESTRADIOL [Suspect]
     Active Substance: ESTRADIOL
     Indication: Transgender hormonal therapy
     Dosage: 4 MILLIGRAM, QW
     Route: 065

REACTIONS (6)
  - Condition aggravated [Unknown]
  - Systemic scleroderma [Unknown]
  - Scleroderma [Unknown]
  - Scleroderma renal crisis [Unknown]
  - Malignant hypertension [Unknown]
  - Acute kidney injury [Unknown]
